FAERS Safety Report 23629413 (Version 2)
Quarter: 2024Q2

REPORT INFORMATION
  Report Type: Spontaneous
  Country: JP (occurrence: JP)
  Receive Date: 20240313
  Receipt Date: 20240410
  Transmission Date: 20240716
  Serious: Yes (Other)
  Sender: FDA-Public Use
  Company Number: JP-MALLINCKRODT-MNK202401825

PATIENT
  Age: 4 Decade
  Sex: Male

DRUGS (3)
  1. OFIRMEV [Suspect]
     Active Substance: ACETAMINOPHEN
     Indication: Abdominal pain
     Dosage: UNKNOWN
  2. BUTYLSCOPOLAMINE BROMIDE [Suspect]
     Active Substance: BUTYLSCOPOLAMINE BROMIDE
     Indication: Abdominal pain
     Dosage: UNKNOWN
  3. PENTAZOCINE [Suspect]
     Active Substance: PENTAZOCINE
     Indication: Abdominal pain
     Dosage: UNKNOWN

REACTIONS (1)
  - Small intestinal perforation [Recovering/Resolving]
